FAERS Safety Report 12614289 (Version 1)
Quarter: 2016Q3

REPORT INFORMATION
  Report Type: Spontaneous
  Country: US (occurrence: US)
  Receive Date: 20160802
  Receipt Date: 20160802
  Transmission Date: 20161109
  Serious: No
  Sender: FDA-Public Use
  Company Number: US-009507513-1607USA011746

PATIENT

DRUGS (3)
  1. NUVARING [Suspect]
     Active Substance: ETHINYL ESTRADIOL\ETONOGESTREL
     Dosage: UNK, STRENGTH 0.15/0.12 UNITS UNSPECIFIED
     Route: 067
     Dates: start: 2016
  2. NUVARING [Suspect]
     Active Substance: ETHINYL ESTRADIOL\ETONOGESTREL
     Dosage: UNK, STRENGTH 0.15/0.12 UNITS UNSPECIFIED
     Route: 067
     Dates: start: 2016
  3. NUVARING [Suspect]
     Active Substance: ETHINYL ESTRADIOL\ETONOGESTREL
     Dosage: UNK, STRENGTH 0.15/0.12 UNITS UNSPECIFIED
     Route: 067
     Dates: start: 2016

REACTIONS (3)
  - No adverse event [Unknown]
  - Poor quality drug administered [Unknown]
  - Incorrect product storage [Unknown]

NARRATIVE: CASE EVENT DATE: 2016
